FAERS Safety Report 8871728 (Version 2)
Quarter: 2012Q4

REPORT INFORMATION
  Report Type: 
  Country: BR (occurrence: BR)
  Receive Date: 20121029
  Receipt Date: 20121030
  Transmission Date: 20130627
  Serious: No
  Sender: FDA-Public Use
  Company Number: PHHY2012BR096431

PATIENT
  Sex: Male
  Weight: 82 kg

DRUGS (2)
  1. EXELON PATCH [Suspect]
     Indication: AMNESIA
     Dosage: 4.6 mg/ 24 hrs
     Route: 062
  2. EXELON PATCH [Suspect]
     Indication: MEMORY IMPAIRMENT

REACTIONS (7)
  - Paraesthesia [Recovering/Resolving]
  - Discomfort [Recovering/Resolving]
  - Application site swelling [Recovering/Resolving]
  - Application site irritation [Recovering/Resolving]
  - Application site erythema [Recovering/Resolving]
  - Application site pruritus [Recovering/Resolving]
  - Application site reaction [Recovering/Resolving]
